FAERS Safety Report 7418837-3 (Version None)
Quarter: 2011Q2

REPORT INFORMATION
  Report Type: 
  Country: None (occurrence: None)
  Receive Date: 20110415
  Receipt Date: 20110408
  Transmission Date: 20111010
  Serious: Yes (Other)
  Sender: FDA-Public Use
  Company Number: US-PFIZER INC-2011078167

PATIENT
  Sex: Female
  Weight: 73.469 kg

DRUGS (4)
  1. FENOFIBRATE [Concomitant]
     Dosage: UNK
  2. CALCIUM [Concomitant]
     Dosage: UNK
  3. VITAMIN D [Concomitant]
     Dosage: UNK
  4. PRISTIQ [Suspect]
     Indication: DEPRESSION
     Dosage: 50 MG, 1X/DAY
     Route: 048
     Dates: start: 20100901, end: 20110326

REACTIONS (11)
  - IRRITABILITY [None]
  - DIZZINESS [None]
  - CONSTIPATION [None]
  - PARAESTHESIA [None]
  - DISORIENTATION [None]
  - NAUSEA [None]
  - DRUG WITHDRAWAL SYNDROME [None]
  - VOMITING [None]
  - VISION BLURRED [None]
  - MANIA [None]
  - ABNORMAL DREAMS [None]
